FAERS Safety Report 8421440-X (Version None)
Quarter: 2012Q2

REPORT INFORMATION
  Report Type: 
  Country: None (occurrence: None)
  Receive Date: 20120608
  Receipt Date: 20120605
  Transmission Date: 20120825
  Serious: Yes (Death)
  Sender: FDA-Public Use
  Company Number: PHHY2012TR036098

PATIENT
  Sex: Female

DRUGS (2)
  1. EXELON [Suspect]
     Indication: DEMENTIA ALZHEIMER'S TYPE
     Dosage: 9 MG, ONCE DAILY
     Route: 062
     Dates: start: 20100521
  2. MEMANTINE HCL [Concomitant]

REACTIONS (2)
  - PLEURISY [None]
  - BREAST CANCER [None]
